FAERS Safety Report 12842979 (Version 1)
Quarter: 2016Q4

REPORT INFORMATION
  Report Type: Spontaneous
  Country: US (occurrence: US)
  Receive Date: 20161012
  Receipt Date: 20161012
  Transmission Date: 20170207
  Serious: No
  Sender: FDA-Public Use
  Company Number: None

PATIENT
  Age: 31 Year
  Sex: Female
  Weight: 72.58 kg

DRUGS (1)
  1. METHIONINE/INOSITOL/CHOLINE/B-COMPLEX [Suspect]
     Active Substance: CHOLINE\INOSITOL\METHIONINE\VITAMIN B COMPLEX

REACTIONS (1)
  - Product sterility lacking [None]
